FAERS Safety Report 5241655-1 (Version None)
Quarter: 2007Q1

REPORT INFORMATION
  Report Type: 
  Country: None (occurrence: None)
  Receive Date: 20070215
  Receipt Date: 20070215
  Transmission Date: 20070707
  Serious: Yes (Hospitalization)
  Sender: FDA-Public Use
  Company Number: None

PATIENT
  Age: 68 Year
  Sex: Female
  Weight: 82.1011 kg

DRUGS (6)
  1. CRESTOR [Suspect]
     Indication: BLOOD CHOLESTEROL INCREASED
     Dosage: 20 MG DAILY
  2. LASIX [Concomitant]
  3. MICARDIS [Concomitant]
  4. METFORMIN HCL [Concomitant]
  5. INOPRIL [Concomitant]
  6. LABETALOL HCL [Concomitant]

REACTIONS (1)
  - RHABDOMYOLYSIS [None]
